FAERS Safety Report 9086618 (Version 1)
Quarter: 2013Q1

REPORT INFORMATION
  Report Type: Report from Study
  Country: US (occurrence: US)
  Receive Date: 20130130
  Receipt Date: 20130130
  Transmission Date: 20140127
  Serious: No
  Sender: FDA-Public Use
  Company Number: US-ABBOTT-12P-163-0989173-00

PATIENT
  Age: 38 Year
  Sex: Male

DRUGS (3)
  1. HUMIRA [Suspect]
     Indication: CROHN^S DISEASE
     Dates: start: 20120831, end: 20120831
  2. HUMIRA [Suspect]
     Dates: start: 20120914, end: 20120914
  3. HUMIRA [Suspect]
     Dates: start: 20120914

REACTIONS (3)
  - Device malfunction [Unknown]
  - Injection site discomfort [Unknown]
  - Anxiety [Unknown]
